FAERS Safety Report 10602463 (Version 2)
Quarter: 2014Q4

REPORT INFORMATION
  Report Type: Spontaneous
  Country: JP (occurrence: JP)
  Receive Date: 20141124
  Receipt Date: 20141224
  Transmission Date: 20150529
  Serious: Yes (Hospitalization, Other)
  Sender: FDA-Public Use
  Company Number: PHHY2014JP152720

PATIENT
  Age: 75 Year
  Sex: Male
  Weight: 60 kg

DRUGS (2)
  1. GLACTIV [Concomitant]
     Active Substance: SITAGLIPTIN
     Indication: TYPE 2 DIABETES MELLITUS
     Dosage: 1 DF, UNK
     Route: 048
     Dates: start: 20140319
  2. ULTIBRO BREEZHALER [Suspect]
     Active Substance: GLYCOPYRRONIUM\INDACATEROL
     Indication: CHRONIC OBSTRUCTIVE PULMONARY DISEASE
     Dosage: 1 DF, UNK
     Route: 055
     Dates: start: 20140319, end: 20140416

REACTIONS (2)
  - Fall [Unknown]
  - Humerus fracture [Recovering/Resolving]

NARRATIVE: CASE EVENT DATE: 20140413
